FAERS Safety Report 7047239-7 (Version None)
Quarter: 2010Q4

REPORT INFORMATION
  Report Type: 
  Country: None (occurrence: None)
  Receive Date: 20101015
  Receipt Date: 20101005
  Transmission Date: 20110411
  Serious: Yes (Death, Other)
  Sender: FDA-Public Use
  Company Number: US-ROCHE-719256

PATIENT
  Sex: Male

DRUGS (1)
  1. ACCUTANE [Suspect]
     Dosage: 2 TABLETS ON EVEN DAYS AND 1 TABLET ON ODD DAYS.80/40
     Route: 048
     Dates: start: 19971209, end: 19980423

REACTIONS (4)
  - COLITIS ULCERATIVE [None]
  - DEEP VEIN THROMBOSIS [None]
  - INFLAMMATORY BOWEL DISEASE [None]
  - MYOCARDITIS [None]
